FAERS Safety Report 8886827 (Version 1)
Quarter: 2012Q4

REPORT INFORMATION
  Report Type: 
  Country: CA (occurrence: CA)
  Receive Date: 20121105
  Receipt Date: 20121105
  Transmission Date: 20130627
  Serious: Yes (Hospitalization, Other)
  Sender: FDA-Public Use
  Company Number: CA-PFIZER INC-2012267921

PATIENT
  Age: 64 Year
  Sex: Female

DRUGS (17)
  1. CELEBREX [Suspect]
     Dosage: 100 mg,
     Dates: start: 19990621
  2. CELEBREX [Suspect]
     Dosage: 200 mg, 2x/day
     Dates: start: 20001201
  3. CELEBREX [Suspect]
     Dosage: 200 mg, 1x/day
     Dates: end: 20061028
  4. SEPTRA [Concomitant]
     Indication: BLADDER INFECTION
     Dosage: UNK
  5. LOPRESOR [Concomitant]
     Dosage: 50 mg, 2x/day
     Route: 048
  6. ALTACE [Concomitant]
     Dosage: 2.5 mg, 1x/day
     Route: 048
  7. PLAQUENIL [Concomitant]
     Dosage: 200 mg, 2x/day
  8. PLAQUENIL [Concomitant]
     Dosage: 100 mg, 2x/day
     Route: 048
  9. ACETYLSALICYLIC ACID [Concomitant]
     Dosage: 80 mg, 1x/day
     Route: 048
  10. PRAVASTATIN [Concomitant]
     Dosage: 40 mg, 1x/day
  11. FOLIC ACID [Concomitant]
     Dosage: 5 mg, 1x/day
  12. CALCIUM [Concomitant]
     Dosage: UNK
  13. VITAMIN D [Concomitant]
     Dosage: UNK
  14. PRAVACHOL [Concomitant]
     Dosage: 40 mg, 1x/day at bedtime
     Route: 048
  15. PLAVIX [Concomitant]
     Dosage: 75 mg (1 caplet), 1x/day
     Route: 048
  16. NITRO [Concomitant]
     Dosage: UNK
  17. MODURET [Concomitant]
     Dosage: UNK

REACTIONS (3)
  - Myocardial infarction [Unknown]
  - Renal failure acute [Recovered/Resolved]
  - Kidney ablation [Recovered/Resolved]
